FAERS Safety Report 7607001-0 (Version None)
Quarter: 2011Q3

REPORT INFORMATION
  Report Type: 
  Country: None (occurrence: None)
  Receive Date: 20110713
  Receipt Date: 20110706
  Transmission Date: 20111222
  Serious: Yes (Other)
  Sender: FDA-Public Use
  Company Number: BR-ABBOTT-11P-020-0837195-00

PATIENT
  Sex: Female
  Weight: 100 kg

DRUGS (7)
  1. HUMIRA [Suspect]
     Indication: RHEUMATOID ARTHRITIS
     Route: 058
     Dates: start: 20080101
  2. CALCIUM CARBONATE [Concomitant]
     Indication: HORMONE REPLACEMENT THERAPY
     Route: 048
  3. ENALAPRIL MALEATE [Concomitant]
     Indication: BLOOD PRESSURE
     Route: 048
  4. ASPIRIN [Concomitant]
     Indication: ANTICOAGULANT THERAPY
     Route: 048
  5. HYDROCHLOROTHIAZIDE [Concomitant]
     Indication: BLOOD PRESSURE
     Route: 048
  6. CLONAZEPAM [Concomitant]
     Indication: SEDATIVE THERAPY
     Route: 048
  7. CIMICIFUGA [Concomitant]
     Indication: HORMONE REPLACEMENT THERAPY
     Route: 048

REACTIONS (7)
  - OSTEOPOROSIS [None]
  - WALKING AID USER [None]
  - LACRIMATION INCREASED [None]
  - ANAEMIA [None]
  - DEAFNESS UNILATERAL [None]
  - BEDRIDDEN [None]
  - WHEEZING [None]
